FAERS Safety Report 14835519 (Version 1)
Quarter: 2018Q2

REPORT INFORMATION
  Report Type: Spontaneous
  Country: GB (occurrence: GB)
  Receive Date: 20180502
  Receipt Date: 20180502
  Transmission Date: 20180711
  Serious: Yes (Other)
  Sender: FDA-Public Use
  Company Number: GB-BRISTOL-MYERS SQUIBB COMPANY-BMS-2018-036315

PATIENT
  Age: 74 Year
  Sex: Male

DRUGS (3)
  1. SOTALOL HYDROCHLORIDE. [Suspect]
     Active Substance: SOTALOL HYDROCHLORIDE
     Indication: ATRIAL FIBRILLATION
     Dosage: 40 MG, BID
     Route: 048
     Dates: start: 20180309
  2. LAMOTRIGINE. [Concomitant]
     Active Substance: LAMOTRIGINE
     Indication: PRODUCT USED FOR UNKNOWN INDICATION
     Dosage: 75 MILLIGRAM, TWO TIMES A DAY
     Route: 048
     Dates: start: 2012
  3. WARFARIN SODIUM. [Suspect]
     Active Substance: WARFARIN SODIUM
     Indication: MITRAL VALVE REPAIR
     Dosage: 3 MILLIGRAM, ONCE A DAY
     Route: 048
     Dates: start: 20171222

REACTIONS (19)
  - Swollen tongue [Unknown]
  - Hyperhidrosis [Unknown]
  - Dysgeusia [Unknown]
  - Dizziness [Unknown]
  - Balance disorder [Unknown]
  - Lip swelling [Unknown]
  - Paraesthesia [Unknown]
  - Chest discomfort [Unknown]
  - Headache [Unknown]
  - Dyspnoea [Unknown]
  - Chest pain [Unknown]
  - Nausea [Unknown]
  - Confusional state [Unknown]
  - Listless [Unknown]
  - Flatulence [Unknown]
  - Tremor [Unknown]
  - Hyperkalaemia [Unknown]
  - Fatigue [Unknown]
  - Productive cough [Unknown]

NARRATIVE: CASE EVENT DATE: 20180327
